FAERS Safety Report 4621461-9 (Version None)
Quarter: 2005Q2

REPORT INFORMATION
  Report Type: 
  Country: None (occurrence: None)
  Receive Date: 20050317
  Receipt Date: 20040216
  Transmission Date: 20051028
  Serious: Yes (Hospitalization)
  Sender: FDA-Public Use
  Company Number: PHEH2003US08936

PATIENT
  Age: 36 Year
  Sex: Female

DRUGS (1)
  1. TRILEPTAL [Suspect]
     Indication: EPILEPSY
     Dosage: 300 MG QD ORAL
     Route: 048

REACTIONS (7)
  - AMNESIA [None]
  - COMPLEX PARTIAL SEIZURES [None]
  - DIPLOPIA [None]
  - DRUG INEFFECTIVE [None]
  - GRAND MAL CONVULSION [None]
  - HYPOAESTHESIA ORAL [None]
  - TREMOR [None]
